FAERS Safety Report 5795999-5 (Version None)
Quarter: 2008Q2

REPORT INFORMATION
  Report Type: 
  Country: None (occurrence: None)
  Receive Date: 20080626
  Receipt Date: 20080617
  Transmission Date: 20081010
  Serious: Yes (Other)
  Sender: FDA-Public Use
  Company Number: 08H-163-0314427-00

PATIENT
  Age: 75 Year
  Sex: Male

DRUGS (11)
  1. AMIODARONE HCL [Suspect]
     Indication: VENTRICULAR TACHYCARDIA
     Dosage: 150 MG, INTRAVENOUS
     Route: 042
  2. CLOZAPINE [Suspect]
     Indication: SCHIZOPHRENIA
     Dosage: 300 MG ; 150 MG
  3. AMIODARONE HCL [Suspect]
     Indication: VENTRICULAR TACHYCARDIA
     Dosage: 400 MG, ORAL
     Route: 048
  4. DIVALPROEX SODIUM [Concomitant]
  5. MAGNESIUM (MAGNESIUM) [Concomitant]
  6. IPRATROPIUM BROMIDE [Concomitant]
  7. ALBUTEROL [Concomitant]
  8. METOPROLOL TARTRATE [Concomitant]
  9. PANTOPRAZOLE SODIUM [Concomitant]
  10. MAGNESIUM GLUCONATE (MAGNESIUM GLUCONATE) [Concomitant]
  11. IRON SUPPLEMENT (IRON PREPARATIONS) [Concomitant]

REACTIONS (3)
  - ANTIPSYCHOTIC DRUG LEVEL INCREASED [None]
  - DRUG INTERACTION [None]
  - THERAPEUTIC AGENT TOXICITY [None]
